FAERS Safety Report 17227737 (Version 1)
Quarter: 2020Q1

REPORT INFORMATION
  Report Type: Spontaneous
  Country: US (occurrence: US)
  Receive Date: 20200103
  Receipt Date: 20200103
  Transmission Date: 20200409
  Serious: Yes (Other)
  Sender: FDA-Public Use
  Company Number: US-DRREDDYS-USA/USA/20/0118012

PATIENT

DRUGS (1)
  1. MELPHALAN HYDROCHLORIDE FOR INJECTION [Suspect]
     Active Substance: MELPHALAN HYDROCHLORIDE
     Indication: METASTATIC MALIGNANT MELANOMA
     Dosage: FOR 90 MINUTES
     Route: 065

REACTIONS (1)
  - Wound complication [Unknown]
